FAERS Safety Report 5958975-5 (Version None)
Quarter: 2008Q4

REPORT INFORMATION
  Report Type: 
  Country: None (occurrence: None)
  Receive Date: 20081117
  Receipt Date: 20081105
  Transmission Date: 20090506
  Serious: Yes (Hospitalization)
  Sender: FDA-Public Use
  Company Number: 2008-03813

PATIENT
  Age: 76 Year
  Sex: Female
  Weight: 70 kg

DRUGS (4)
  1. VELCADE [Suspect]
     Indication: MULTIPLE MYELOMA
     Dosage: 1.3 MG/M2
     Dates: start: 20080505, end: 20080923
  2. DOXORUBICIN HCL [Suspect]
     Indication: MULTIPLE SCLEROSIS
     Dosage: 30 MG/M2
     Dates: start: 20080505, end: 20080710
  3. BACTRIM DS [Suspect]
     Indication: INFECTION PROPHYLAXIS
     Dates: start: 20080715, end: 20080725
  4. DEXAMETHASONE [Concomitant]

REACTIONS (6)
  - DRUG RESISTANCE [None]
  - FRACTURE [None]
  - PALMAR-PLANTAR ERYTHRODYSAESTHESIA SYNDROME [None]
  - PROTEUS INFECTION [None]
  - PYREXIA [None]
  - TOXIC SKIN ERUPTION [None]
